FAERS Safety Report 24104676 (Version 2)
Quarter: 2024Q3

REPORT INFORMATION
  Report Type: Spontaneous
  Country: PK (occurrence: PK)
  Receive Date: 20240717
  Receipt Date: 20240909
  Transmission Date: 20241017
  Serious: Yes (Other)
  Sender: AMGEN
  Company Number: PK-PFIZER INC-PV202400015439

PATIENT
  Age: 36 Year
  Sex: Female

DRUGS (6)
  1. ENBREL [Suspect]
     Active Substance: ETANERCEPT
     Indication: Spondylitis
     Dosage: 50 MG, WEEKLY
     Route: 058
     Dates: start: 20231007
  2. ENBREL [Suspect]
     Active Substance: ETANERCEPT
     Indication: Arthritis
     Dosage: 50 MG, EVERY 10TH DAY
     Route: 058
  3. FOLIC ACID [Concomitant]
     Active Substance: FOLIC ACID
     Indication: Product used for unknown indication
     Dosage: 5 MG, 1X/DAY
     Route: 065
  4. Zeegap [Concomitant]
     Indication: Product used for unknown indication
     Dosage: 50 MG, 1X/DAY (AFTER MEAL)
     Route: 065
  5. NEXIUM [Concomitant]
     Active Substance: ESOMEPRAZOLE MAGNESIUM
     Indication: Product used for unknown indication
     Dosage: 40 MG, 1X/DAY (BEFORE MEAL)
     Route: 065
  6. PANADOL [Concomitant]
     Active Substance: ACETAMINOPHEN
     Indication: Product used for unknown indication
     Dosage: 1000 MG, AS NEEDED (500MG TAB, 2 TABS ONCE A DAY, AFTER MEALS)
     Route: 065

REACTIONS (6)
  - Condition aggravated [Unknown]
  - Haemoglobin decreased [Not Recovered/Not Resolved]
  - Malaise [Unknown]
  - Off label use [Unknown]
  - Asthenia [Unknown]
  - Hypotension [Unknown]

NARRATIVE: CASE EVENT DATE: 20231007
